FAERS Safety Report 4766847-7 (Version None)
Quarter: 2005Q3

REPORT INFORMATION
  Report Type: 
  Country: None (occurrence: None)
  Receive Date: 20050909
  Receipt Date: 20050902
  Transmission Date: 20060218
  Serious: Yes (Hospitalization)
  Sender: FDA-Public Use
  Company Number: 2005-132168-NL

PATIENT
  Age: 19 Year
  Sex: Female

DRUGS (8)
  1. ROCURONIUM BROMIDE [Suspect]
     Indication: SENSORY DISTURBANCE
     Dosage: 20 MG ONCE INTRAVENOUS (NOS)
     Route: 042
     Dates: start: 20031114, end: 20031114
  2. MIDAZOLAM [Suspect]
     Indication: SENSORY DISTURBANCE
     Dosage: 2 MG ONCE
  3. FENTANYL [Suspect]
     Indication: SENSORY DISTURBANCE
     Dosage: 75 UG ONCE
     Dates: start: 20031114, end: 20031114
  4. METHYLPREDNISOLONE [Suspect]
     Indication: SENSORY DISTURBANCE
     Dosage: 125 MG ONCE INTRAVENOUS (NOS)
     Route: 042
     Dates: start: 20031114, end: 20031114
  5. AMPICILLIN [Suspect]
     Indication: SENSORY DISTURBANCE
     Dosage: 1 G ONCE
     Dates: start: 20031114, end: 20031114
  6. PARECOXIB SODIUM [Suspect]
     Indication: SENSORY DISTURBANCE
     Dosage: 40 MG ONCE INTRAVENOUS (NOS)
     Route: 042
     Dates: start: 20031114, end: 20031114
  7. PROPOFOL [Suspect]
     Indication: SENSORY DISTURBANCE
     Dosage: 130 MG ONCE INTRAVENOUS (NOS)
     Route: 042
     Dates: start: 20031114, end: 20031114
  8. SEVOFLURANE [Suspect]
     Indication: SENSORY DISTURBANCE
     Dosage: RESPIRATORY (INHALATION)
     Route: 055
     Dates: start: 20031114, end: 20031114

REACTIONS (1)
  - DYSKINESIA [None]
